FAERS Safety Report 19695187 (Version 1)
Quarter: 2021Q3

REPORT INFORMATION
  Report Type: Report from Study
  Country: US (occurrence: US)
  Receive Date: 20210813
  Receipt Date: 20210813
  Transmission Date: 20211014
  Serious: Yes (Other)
  Sender: FDA-Public Use
  Company Number: NVSC2021US180046

PATIENT
  Age: 21 Year
  Sex: Female
  Weight: 72.1 kg

DRUGS (2)
  1. MEKINIST [Suspect]
     Active Substance: TRAMETINIB DIMETHYL SULFOXIDE
     Indication: GLIOMA
     Dosage: UNK
     Route: 065
     Dates: start: 20210604, end: 20210726
  2. DABRAFENIB [Suspect]
     Active Substance: DABRAFENIB
     Indication: GLIOMA
     Dosage: UNK
     Route: 065
     Dates: start: 20210604, end: 20210726

REACTIONS (1)
  - Rash maculo-papular [Recovered/Resolved with Sequelae]

NARRATIVE: CASE EVENT DATE: 20210624
